FAERS Safety Report 14021857 (Version 3)
Quarter: 2018Q1

REPORT INFORMATION
  Report Type: Report from Study
  Country: US (occurrence: US)
  Receive Date: 20170928
  Receipt Date: 20180327
  Transmission Date: 20180508
  Serious: Yes (Other)
  Sender: FDA-Public Use
  Company Number: US-CLOVIS ONCOLOGY-CLO-2017-001073

PATIENT
  Age: 70 Year
  Sex: Female

DRUGS (2)
  1. RUBRACA [Suspect]
     Active Substance: RUCAPARIB CAMSYLATE
     Dosage: 500 MG, BID
     Route: 048
     Dates: start: 20171012, end: 20180123
  2. RUBRACA [Suspect]
     Active Substance: RUCAPARIB CAMSYLATE
     Indication: OVARIAN CANCER
     Dosage: 600 MG, BID
     Route: 048
     Dates: start: 20170818, end: 20171011

REACTIONS (11)
  - Blood urea increased [Unknown]
  - Blood count abnormal [Unknown]
  - Red blood cell count decreased [Unknown]
  - Anaemia [Unknown]
  - Blood creatinine increased [Unknown]
  - Blood cholesterol increased [Unknown]
  - Dysgeusia [Unknown]
  - Drug ineffective [Unknown]
  - Decreased appetite [Unknown]
  - Constipation [Unknown]
  - Drug dose omission [Unknown]

NARRATIVE: CASE EVENT DATE: 2017
